FAERS Safety Report 5004034-8 (Version None)
Quarter: 2006Q2

REPORT INFORMATION
  Report Type: 
  Country: None (occurrence: None)
  Receive Date: 20060517
  Receipt Date: 20060512
  Transmission Date: 20061013
  Serious: Yes (Life-Threatening, Hospitalization)
  Sender: FDA-Public Use
  Company Number: PHHO2006JP07722

PATIENT
  Age: 83 Year
  Sex: Male

DRUGS (8)
  1. DIOVAN [Suspect]
     Indication: HYPERTENSION
     Dosage: 80 MG, QD
     Route: 048
     Dates: start: 20030109
  2. AMLODIN [Concomitant]
  3. TANATRIL [Concomitant]
     Indication: HYPERTENSION
     Dates: start: 20021115, end: 20050328
  4. GASTER D [Concomitant]
  5. LIPITOR [Concomitant]
  6. CARDENALIN [Concomitant]
     Indication: HYPERTENSION
     Dates: start: 20030101, end: 20050328
  7. ARTIST [Concomitant]
  8. PANALDINE [Concomitant]

REACTIONS (5)
  - ANGINA UNSTABLE [None]
  - CHEST PAIN [None]
  - CORONARY ARTERY STENOSIS [None]
  - ELECTROCARDIOGRAM ST SEGMENT DEPRESSION [None]
  - STENT PLACEMENT [None]
